FAERS Safety Report 10723611 (Version 1)
Quarter: 2015Q1

REPORT INFORMATION
  Report Type: Report from Study
  Country: NL (occurrence: NL)
  Receive Date: 20150120
  Receipt Date: 20150120
  Transmission Date: 20150721
  Serious: Yes (Hospitalization)
  Sender: FDA-Public Use
  Company Number: NL-TEVA-534307ISR

PATIENT
  Age: 43 Year

DRUGS (7)
  1. METOPROLOL RETARD [Concomitant]
     Dosage: 50 MILLIGRAM DAILY; CONTOLLED RELEASE
  2. PRIMPERAN [Concomitant]
     Active Substance: METOCLOPRAMIDE HYDROCHLORIDE
  3. MYOCET [Suspect]
     Active Substance: DOXORUBICIN
     Dosage: 0 MILLIGRAM DAILY;
  4. BEVACIZUMAB [Suspect]
     Active Substance: BEVACIZUMAB
     Indication: BREAST CANCER METASTATIC
     Dosage: 800 MILLIGRAM DAILY;
     Route: 042
     Dates: start: 20141031, end: 20141212
  5. LOPERAMIDE [Concomitant]
     Active Substance: LOPERAMIDE
     Dosage: 2 MILLIGRAM DAILY;
  6. PACLITAXEL. [Suspect]
     Active Substance: PACLITAXEL
     Indication: BREAST CANCER METASTATIC
     Dosage: 168  DAILY;
     Route: 042
     Dates: start: 20141031, end: 20141212
  7. OXAZEPAM. [Concomitant]
     Active Substance: OXAZEPAM
     Dosage: 10 MILLIGRAM DAILY;

REACTIONS (2)
  - Pyrexia [Recovered/Resolved]
  - Dyspnoea [Recovered/Resolved]

NARRATIVE: CASE EVENT DATE: 20141216
